FAERS Safety Report 20403268 (Version 1)
Quarter: 2022Q1

REPORT INFORMATION
  Report Type: Spontaneous
  Country: ZA (occurrence: ZA)
  Receive Date: 20220131
  Receipt Date: 20220131
  Transmission Date: 20220423
  Serious: Yes (Other)
  Sender: FDA-Public Use
  Company Number: ZA-PFIZER INC-202101348555

PATIENT
  Age: 70 Year
  Sex: Male
  Weight: 112 kg

DRUGS (1)
  1. ENBREL [Suspect]
     Active Substance: ETANERCEPT
     Indication: Product used for unknown indication
     Dosage: 50 MILLIGRAM, QWK
     Route: 058

REACTIONS (3)
  - Knee arthroplasty [Recovering/Resolving]
  - Cardiac failure [Unknown]
  - Bronchitis [Unknown]

NARRATIVE: CASE EVENT DATE: 20180101
